FAERS Safety Report 6014644-7 (Version None)
Quarter: 2008Q4

REPORT INFORMATION
  Report Type: 
  Country: None (occurrence: None)
  Receive Date: 20081219
  Receipt Date: 20081009
  Transmission Date: 20090506
  Serious: No
  Sender: FDA-Public Use
  Company Number: A0751139A

PATIENT
  Age: 79 Year
  Sex: Female

DRUGS (5)
  1. AVODART [Suspect]
     Dosage: .5MG PER DAY
     Route: 048
     Dates: start: 20080908
  2. SYNTHROID [Concomitant]
  3. LISINOPRIL [Concomitant]
  4. PRILOSEC [Concomitant]
  5. CALCIUM [Concomitant]

REACTIONS (1)
  - HAIR GROWTH ABNORMAL [None]
